FAERS Safety Report 20621959 (Version 1)
Quarter: 2022Q1

REPORT INFORMATION
  Report Type: Spontaneous
  Country: US (occurrence: None)
  Receive Date: 20220321
  Receipt Date: 20220321
  Transmission Date: 20220423
  Serious: No
  Sender: FDA-Public Use
  Company Number: None

PATIENT
  Age: 47 Year
  Sex: Female
  Weight: 81 kg

DRUGS (1)
  1. DIPHENHYDRAMINE [Suspect]
     Active Substance: DIPHENHYDRAMINE
     Indication: Prophylaxis
     Dosage: OTHER FREQUENCY : PRIOR TO IVIG INFU;?
     Route: 042
     Dates: start: 20220320, end: 20220320

REACTIONS (2)
  - Blood pressure decreased [None]
  - Chest pain [None]

NARRATIVE: CASE EVENT DATE: 20220320
